FAERS Safety Report 11104025 (Version 4)
Quarter: 2016Q3

REPORT INFORMATION
  Report Type: Spontaneous
  Country: JP (occurrence: JP)
  Receive Date: 20150511
  Receipt Date: 20160713
  Transmission Date: 20161109
  Serious: Yes (Other)
  Sender: FDA-Public Use
  Company Number: JP-GLAXOSMITHKLINE-JP2015JPN061863

PATIENT
  Age: 62 Year
  Sex: Male

DRUGS (2)
  1. CABASER [Concomitant]
     Active Substance: CABERGOLINE
     Dosage: UNK
  2. REQUIP [Suspect]
     Active Substance: ROPINIROLE HYDROCHLORIDE
     Indication: PARKINSON^S DISEASE
     Dosage: 6 MG, 1D
     Route: 048

REACTIONS (2)
  - Parkinson^s disease [Recovering/Resolving]
  - Treatment noncompliance [Unknown]
